FAERS Safety Report 8485758 (Version 2)
Quarter: 2012Q4

REPORT INFORMATION
  Report Type: Report from Study
  Country: NL (occurrence: NL)
  Receive Date: 20120330
  Receipt Date: 20120917
  Transmission Date: 20130627
  Serious: Yes (Hospitalization)
  Sender: FDA-Public Use
  Company Number: NL-ABBOTT-12P-114-0917179-04

PATIENT
  Age: 43 Year
  Sex: Female

DRUGS (12)
  1. HUMIRA [Suspect]
     Indication: CROHN^S DISEASE
     Route: 058
     Dates: start: 20080930
  2. HUMIRA [Suspect]
     Dosage: Baseline
     Route: 058
  3. HUMIRA [Suspect]
     Dosage: Week 2
     Route: 058
  4. HUMIRA [Suspect]
     Route: 058
     Dates: end: 20090731
  5. HUMIRA [Suspect]
     Dosage: Commercial HUMIRA
     Route: 058
     Dates: start: 20101031, end: 201109
  6. QUESTRAN [Concomitant]
     Indication: DIARRHOEA
     Dates: start: 20081230
  7. AZATHIOPRINE [Concomitant]
     Indication: CROHN^S DISEASE
     Dates: start: 20090112
  8. PREDNISONE [Concomitant]
     Indication: CROHN^S DISEASE
     Dosage: 40 mg daily and tapering
     Dates: start: 20090226
  9. LOPERAMIDE [Concomitant]
     Indication: DIARRHOEA
     Dates: start: 20080804
  10. HYDROCOBAMINE [Concomitant]
     Indication: VITAMIN SUPPLEMENTATION
     Dosage: 500 mcg/ml, 2 ml once a month
     Dates: start: 20061102
  11. CALCICHEW-D3 [Concomitant]
     Indication: OSTEOPOROSIS
     Dosage: 500 mg/ 400IE once daily
     Dates: start: 20061102
  12. PARACETAMOL [Concomitant]
     Indication: ABDOMINAL PAIN
     Dates: start: 20090310

REACTIONS (1)
  - Crohn^s disease [Unknown]
